FAERS Safety Report 14154220 (Version 1)
Quarter: 2017Q4

REPORT INFORMATION
  Report Type: Spontaneous
  Country: US (occurrence: US)
  Receive Date: 20171102
  Receipt Date: 20171102
  Transmission Date: 20180321
  Serious: No
  Sender: FDA-Public Use
  Company Number: US-LEXICON PHARMACEUTICALS, INC-17-1606-00984

PATIENT
  Sex: Female

DRUGS (5)
  1. TELOTRISTAT ETHYL [Suspect]
     Active Substance: TELOTRISTAT ETHYL
     Indication: CARCINOID TUMOUR
     Route: 048
     Dates: start: 20170615
  2. SANDOSTATIN [Concomitant]
     Active Substance: OCTREOTIDE ACETATE
  3. LEVOTHROID [Concomitant]
     Active Substance: LEVOTHYROXINE SODIUM
  4. TELOTRISTAT ETHYL [Suspect]
     Active Substance: TELOTRISTAT ETHYL
     Indication: CARCINOID TUMOUR
     Route: 048
     Dates: start: 20170331, end: 2017
  5. EFFEXOR [Concomitant]
     Active Substance: VENLAFAXINE HYDROCHLORIDE

REACTIONS (2)
  - Post procedural complication [Not Recovered/Not Resolved]
  - Malaise [Not Recovered/Not Resolved]

NARRATIVE: CASE EVENT DATE: 2017
